FAERS Safety Report 4559505-5 (Version None)
Quarter: 2005Q1

REPORT INFORMATION
  Report Type: 
  Country: None (occurrence: None)
  Receive Date: 20050119
  Receipt Date: 20050110
  Transmission Date: 20050727
  Serious: Yes (Death)
  Sender: FDA-Public Use
  Company Number: 2005010804

PATIENT
  Age: 47 Year
  Sex: Male
  Weight: 141 kg

DRUGS (4)
  1. DOXAZOSIN MESYLATE [Suspect]
     Indication: BLOOD PRESSURE INCREASED
     Dosage: 4 MG, ORAL
     Route: 048
     Dates: start: 20040903, end: 20041213
  2. RAMIPRIL [Concomitant]
  3. BENDROFLUMETHIAZIDE (BENDROFLUMETHIAZIDE) [Concomitant]
  4. NIFEDIPINE [Concomitant]

REACTIONS (1)
  - SUDDEN DEATH [None]
